FAERS Safety Report 6752058-2 (Version None)
Quarter: 2010Q2

REPORT INFORMATION
  Report Type: 
  Country: None (occurrence: None)
  Receive Date: 20100602
  Receipt Date: 20100519
  Transmission Date: 20101027
  Serious: Yes (Hospitalization)
  Sender: FDA-Public Use
  Company Number: US-ELI_LILLY_AND_COMPANY-US201005000162

PATIENT
  Sex: Female

DRUGS (14)
  1. FORTEO [Suspect]
     Indication: OSTEOPOROSIS
     Dosage: 20 UG, DAILY (1/D)
     Dates: start: 20100423
  2. DILANTIN [Concomitant]
     Dosage: 100 MG, 2/D
  3. PHENOBARBITAL [Concomitant]
     Dosage: 30 MG, 2/D
  4. CARVEDILOL [Concomitant]
     Dosage: 6.25 MG, 2/D
  5. PLAVIX [Concomitant]
     Dosage: 75 MG, DAILY (1/D)
  6. SIMVASTATIN [Concomitant]
     Dosage: 40 MG, DAILY (1/D)
  7. VITAMIN TAB [Concomitant]
  8. CALCIUM CARBONATE [Concomitant]
  9. FLAGYL [Concomitant]
  10. PROTONIX [Concomitant]
  11. ECOTRIN [Concomitant]
     Dosage: 325 MG, DAILY (1/D)
  12. VIACTIV /00751501/ [Concomitant]
     Dosage: 500 MG, 3/D
  13. VITAMIN C [Concomitant]
     Dosage: 500 MG, DAILY (1/D)
  14. VITAMIN E /001105/ [Concomitant]
     Dosage: 400 MG, DAILY (1/D)

REACTIONS (1)
  - GASTROENTERITIS [None]
